FAERS Safety Report 21780388 (Version 3)
Quarter: 2023Q2

REPORT INFORMATION
  Report Type: Spontaneous
  Country: PT (occurrence: PT)
  Receive Date: 20221227
  Receipt Date: 20230405
  Transmission Date: 20230722
  Serious: Yes (Other)
  Sender: FDA-Public Use
  Company Number: PT-ASTELLAS-2022US045257

PATIENT
  Age: 77 Year
  Sex: Male

DRUGS (1)
  1. XTANDI [Suspect]
     Active Substance: ENZALUTAMIDE
     Indication: Hormone-refractory prostate cancer
     Route: 048
     Dates: start: 20201030, end: 20220106

REACTIONS (1)
  - Malignant neoplasm progression [Unknown]
